FAERS Safety Report 6144996-9 (Version None)
Quarter: 2009Q2

REPORT INFORMATION
  Report Type: 
  Country: None (occurrence: None)
  Receive Date: 20090406
  Receipt Date: 20090324
  Transmission Date: 20091009
  Serious: Yes (Other)
  Sender: FDA-Public Use
  Company Number: MX-ELI_LILLY_AND_COMPANY-MX200903006553

PATIENT
  Sex: Male

DRUGS (1)
  1. ZYPREXA [Suspect]
     Indication: SCHIZOPHRENIA
     Dosage: 10 MG, UNKNOWN
     Route: 065
     Dates: start: 20071001

REACTIONS (3)
  - BLOOD TRIGLYCERIDES ABNORMAL [None]
  - METABOLIC SYNDROME [None]
  - WEIGHT INCREASED [None]
